FAERS Safety Report 5603179-9 (Version None)
Quarter: 2008Q1

REPORT INFORMATION
  Report Type: 
  Country: None (occurrence: None)
  Receive Date: 20080125
  Receipt Date: 20080115
  Transmission Date: 20080703
  Serious: Yes (Other)
  Sender: FDA-Public Use
  Company Number: US-PFIZER INC-2008005389

PATIENT
  Sex: Female
  Weight: 59 kg

DRUGS (13)
  1. LYRICA [Suspect]
     Indication: HYPOAESTHESIA
     Route: 048
  2. LYRICA [Suspect]
     Indication: PAIN
  3. ZANTAC [Concomitant]
  4. OMEPRAZOLE [Concomitant]
  5. ZOLOFT [Concomitant]
  6. PLAVIX [Concomitant]
  7. PRAVASTATIN [Concomitant]
  8. ATIVAN [Concomitant]
  9. VITAMIN B [Concomitant]
  10. FISH OIL [Concomitant]
  11. DARVOCET [Concomitant]
  12. CALCIUM CARBONATE [Concomitant]
  13. IBANDRONATE SODIUM [Concomitant]

REACTIONS (6)
  - EYE DISORDER [None]
  - FLATULENCE [None]
  - VIRAL INFECTION [None]
  - VISION BLURRED [None]
  - VISUAL ACUITY REDUCED [None]
  - WEIGHT INCREASED [None]
